FAERS Safety Report 10677097 (Version 1)
Quarter: 2014Q4

REPORT INFORMATION
  Report Type: Spontaneous
  Country: JP (occurrence: JP)
  Receive Date: 20141226
  Receipt Date: 20141226
  Transmission Date: 20150529
  Serious: Yes (Life-Threatening)
  Sender: FDA-Public Use
  Company Number: JP-009507513-1412JPN012363

PATIENT

DRUGS (4)
  1. SORAFENIB [Suspect]
     Active Substance: SORAFENIB
     Indication: HEPATOCELLULAR CARCINOMA
  2. CISPLATIN. [Suspect]
     Active Substance: CISPLATIN
     Indication: HEPATOCELLULAR CARCINOMA
     Dosage: 20 MG/M2 DAILY FROM DAYS 1-5 AND 8-12
  3. PEGINTERFERON ALFA-2B [Suspect]
     Active Substance: PEGINTERFERON ALFA-2B
     Indication: HEPATOCELLULAR CARCINOMA
     Dosage: DOSE : 1 MICROGRAM /KG ON DAYS 1, 8, 15, AND 22.
     Route: 058
  4. FLUOROURACIL. [Suspect]
     Active Substance: FLUOROURACIL
     Indication: HEPATOCELLULAR CARCINOMA
     Dosage: STRENGTH:(330 MG/M2 PER DAY} OVER 24 H FROM DAYS 1-5 AND 8-12

REACTIONS (1)
  - Neutropenia [Recovered/Resolved]
